FAERS Safety Report 8259521-6 (Version None)
Quarter: 2012Q1

REPORT INFORMATION
  Report Type: 
  Country: None (occurrence: None)
  Receive Date: 20120327
  Receipt Date: 20080822
  Transmission Date: 20120608
  Serious: Yes (Other)
  Sender: FDA-Public Use
  Company Number: PHEH2008US07478

PATIENT
  Age: 4 Year
  Sex: Male

DRUGS (7)
  1. CARAFATE [Concomitant]
  2. SEPTRA [Concomitant]
  3. GLEEVEC [Suspect]
     Indication: ACUTE LYMPHOCYTIC LEUKAEMIA
     Dosage: 250 MG, QD, ORAL
     Route: 048
     Dates: start: 20080617
  4. GLEEVEC [Suspect]
     Indication: CHROMOSOME ANALYSIS ABNORMAL
     Dosage: 250 MG, QD, ORAL
     Route: 048
     Dates: start: 20080617
  5. METHOTREXATE [Concomitant]
  6. CYTARABINE [Concomitant]
  7. REGLAN /USA/ (METOCLOPRAMIDE HYDROCHLORIDE) [Concomitant]

REACTIONS (2)
  - NAUSEA [None]
  - VOMITING [None]
